FAERS Safety Report 5223976-1 (Version None)
Quarter: 2007Q1

REPORT INFORMATION
  Report Type: 
  Country: None (occurrence: None)
  Receive Date: 20070130
  Receipt Date: 20070124
  Transmission Date: 20070707
  Serious: Yes (Other)
  Sender: FDA-Public Use
  Company Number: NL-GLAXOSMITHKLINE-B0440936A

PATIENT
  Age: 46 Year
  Sex: Female

DRUGS (1)
  1. ZYBAN [Suspect]
     Dosage: 150MG TWICE PER DAY
     Route: 065
     Dates: start: 20000728, end: 20000801

REACTIONS (7)
  - ARRHYTHMIA [None]
  - DECREASED INTEREST [None]
  - DEPRESSION [None]
  - FEELING ABNORMAL [None]
  - PALPITATIONS [None]
  - PARAESTHESIA [None]
  - SUICIDAL IDEATION [None]
